FAERS Safety Report 10571761 (Version 2)
Quarter: 2014Q4

REPORT INFORMATION
  Report Type: Spontaneous
  Country: IT (occurrence: IT)
  Receive Date: 20141107
  Receipt Date: 20141127
  Transmission Date: 20150529
  Serious: Yes (Other)
  Sender: FDA-Public Use
  Company Number: IT-009507513-1411ITA002314

PATIENT
  Age: 67 Year
  Sex: Male

DRUGS (7)
  1. CRESTOR [Concomitant]
     Active Substance: ROSUVASTATIN CALCIUM
     Route: 048
  2. METFORMIN [Concomitant]
     Active Substance: METFORMIN HYDROCHLORIDE
     Route: 048
  3. MIRTAZAPINE. [Suspect]
     Active Substance: MIRTAZAPINE
     Indication: DRUG ABUSE
     Dosage: 5 DF TOTAL
     Route: 048
     Dates: start: 20140906, end: 20140906
  4. CORLENTOR [Concomitant]
     Active Substance: IVABRADINE HYDROCHLORIDE
     Route: 048
  5. APIDRA [Concomitant]
     Active Substance: INSULIN GLULISINE
     Route: 058
  6. TACHIDOL [Concomitant]
     Active Substance: ACETAMINOPHEN\CODEINE PHOSPHATE
     Dosage: EFFERVESCENT GRANULES
     Route: 048
  7. NOZINAN [Suspect]
     Active Substance: LEVOMEPROMAZINE
     Indication: DRUG ABUSE
     Dosage: 5 DF TOTAL
     Route: 048
     Dates: start: 20140906, end: 20140906

REACTIONS (4)
  - Hyperglycaemia [Recovering/Resolving]
  - Sopor [Recovering/Resolving]
  - Gait disturbance [Recovering/Resolving]
  - Drug abuse [Recovering/Resolving]

NARRATIVE: CASE EVENT DATE: 20140906
